FAERS Safety Report 8919647 (Version 3)
Quarter: 2014Q2

REPORT INFORMATION
  Report Type: Spontaneous
  Country: US (occurrence: US)
  Receive Date: 20121121
  Receipt Date: 20140501
  Transmission Date: 20141212
  Serious: Yes (Hospitalization)
  Sender: FDA-Public Use
  Company Number: US-BAYER-2012-120664

PATIENT
  Age: 20 Year
  Sex: Female
  Weight: 77.1 kg

DRUGS (7)
  1. YASMIN [Suspect]
     Dosage: UNK
     Dates: start: 20040101, end: 200912
  2. IBUPROFEN [Concomitant]
  3. DILAUDID [Concomitant]
     Dosage: UNK
  4. PRILOSEC [Concomitant]
     Dosage: UNK
  5. ALLEGRA [Concomitant]
     Dosage: UNK
  6. ZANTAC [Concomitant]
     Dosage: UNK
  7. VICODIN [Concomitant]
     Dosage: UNK

REACTIONS (9)
  - Cholecystectomy [None]
  - Cholecystitis acute [None]
  - Pain [None]
  - Injury [None]
  - General physical health deterioration [None]
  - Anxiety [None]
  - Anhedonia [None]
  - Emotional distress [None]
  - Pain [None]
